FAERS Safety Report 18177943 (Version 2)
Quarter: 2020Q3

REPORT INFORMATION
  Report Type: Report from Study
  Country: US (occurrence: US)
  Receive Date: 20200821
  Receipt Date: 20200824
  Transmission Date: 20201103
  Serious: Yes (Life-Threatening, Hospitalization)
  Sender: FDA-Public Use
  Company Number: US-ROCHE-2660810

PATIENT
  Age: 66 Year
  Sex: Female
  Weight: 94.3 kg

DRUGS (5)
  1. PERTUZUMAB. [Suspect]
     Active Substance: PERTUZUMAB
     Indication: BREAST CANCER METASTATIC
     Dosage: ON DAYS 1 AND 22?ON 08/JUL/2020, HE RECEIVED MOST RECENT DOSE OF PERTUZUMAB
     Route: 042
     Dates: start: 20200708
  2. TRASTUZUMAB. [Suspect]
     Active Substance: TRASTUZUMAB
     Indication: BREAST CANCER METASTATIC
     Dosage: ON DAYS 1 AND 22
     Route: 042
     Dates: start: 20200708
  3. PLACEBO [Suspect]
     Active Substance: UNSPECIFIED INGREDIENT
     Indication: BREAST CANCER METASTATIC
     Dosage: ON DAY 1 AND 22 ?ON 08/JUL/2020, HE RECEIVED MOST RECENT DOSE OF BLINDED ATEZOLIZUMAB
     Route: 042
     Dates: start: 20200708
  4. PACLITAXEL. [Suspect]
     Active Substance: PACLITAXEL
     Indication: BREAST CANCER METASTATIC
     Dosage: ON DAYS 1, 8, 15, 22, 29, AND 36 ?ON 08/JUL/2020, HE RECEIVED MOST RECENT DOSE OF PACLITAXEL (164 MG
     Route: 042
     Dates: start: 20200708
  5. WARFARIN [Suspect]
     Active Substance: WARFARIN
     Indication: INVASIVE BREAST CARCINOMA
     Route: 065

REACTIONS (3)
  - Cardiac failure [Recovered/Resolved]
  - Pulmonary oedema [Recovered/Resolved]
  - Gastric haemorrhage [Recovered/Resolved]

NARRATIVE: CASE EVENT DATE: 20200710
